FAERS Safety Report 4445849-4 (Version None)
Quarter: 2004Q3

REPORT INFORMATION
  Report Type: 
  Country: None (occurrence: None)
  Receive Date: 20040908
  Receipt Date: 20040908
  Transmission Date: 20050211
  Serious: Yes (Hospitalization)
  Sender: FDA-Public Use
  Company Number: None

PATIENT
  Age: 78 Year
  Sex: Male

DRUGS (7)
  1. TERAZOSIN HCL [Suspect]
     Indication: BENIGN PROSTATIC HYPERPLASIA
     Dosage: 5 MG BID
     Dates: start: 20030912
  2. FOSINOPRIL SODIUM [Concomitant]
  3. NIFEDIPINE [Concomitant]
  4. ACIPHEX [Concomitant]
  5. LORATADINE [Concomitant]
  6. SEVELAMAR [Concomitant]
  7. ASPIRIN [Concomitant]

REACTIONS (1)
  - SYNCOPE [None]
